FAERS Safety Report 16005168 (Version 3)
Quarter: 2019Q2

REPORT INFORMATION
  Report Type: Spontaneous
  Country: US (occurrence: US)
  Receive Date: 20190226
  Receipt Date: 20190503
  Transmission Date: 20190711
  Serious: No
  Sender: FDA-Public Use
  Company Number: US-HETERO CORPORATE-HET2019US00219

PATIENT
  Age: 71 Year
  Sex: Female
  Weight: 68 kg

DRUGS (2)
  1. VALSARTAN. [Suspect]
     Active Substance: VALSARTAN
     Indication: HYPERTENSION
     Dosage: 160 MG, QD
     Route: 065
     Dates: start: 2018, end: 2018
  2. ATENOLOL. [Concomitant]
     Active Substance: ATENOLOL
     Indication: PRODUCT USED FOR UNKNOWN INDICATION
     Dosage: UNK
     Route: 065

REACTIONS (8)
  - Gastrointestinal tract irritation [Recovering/Resolving]
  - Feeling abnormal [Recovering/Resolving]
  - Eye pain [Recovering/Resolving]
  - Swelling face [Recovering/Resolving]
  - Skin wrinkling [Recovering/Resolving]
  - Vision blurred [Recovering/Resolving]
  - Rash [Recovering/Resolving]
  - Diarrhoea [Recovering/Resolving]

NARRATIVE: CASE EVENT DATE: 2018
